FAERS Safety Report 5263706-0 (Version None)
Quarter: 2007Q1

REPORT INFORMATION
  Report Type: 
  Country: None (occurrence: None)
  Receive Date: 20070312
  Receipt Date: 20070312
  Transmission Date: 20070707
  Serious: Yes (Other)
  Sender: FDA-Public Use
  Company Number: None

PATIENT
  Age: 54 Year
  Sex: Female
  Weight: 70.3075 kg

DRUGS (1)
  1. ZICAM NASAL SPRAY MATTIX [Suspect]
     Indication: MULTIPLE ALLERGIES
     Dosage: SQUIRT 2 TIMES A DAY NASAL
     Route: 045
     Dates: start: 20060704, end: 20060713

REACTIONS (2)
  - AGEUSIA [None]
  - HYPOSMIA [None]
